FAERS Safety Report 7420212-2 (Version None)
Quarter: 2011Q2

REPORT INFORMATION
  Report Type: 
  Country: None (occurrence: None)
  Receive Date: 20110418
  Receipt Date: 20110404
  Transmission Date: 20111010
  Serious: Yes (Death, Other)
  Sender: FDA-Public Use
  Company Number: IT-CELGENEUS-083-21880-11030500

PATIENT
  Sex: Female

DRUGS (1)
  1. REVLIMID [Suspect]
     Dosage: 10 MILLIGRAM
     Route: 048
     Dates: start: 20110201, end: 20110206

REACTIONS (5)
  - RESPIRATORY FAILURE [None]
  - PNEUMONIA [None]
  - ANAEMIA [None]
  - ANURIA [None]
  - HAEMORRHAGIC DIATHESIS [None]
